FAERS Safety Report 13770552 (Version 4)
Quarter: 2017Q3

REPORT INFORMATION
  Report Type: Report from Study
  Country: US (occurrence: US)
  Receive Date: 20170719
  Receipt Date: 20170814
  Transmission Date: 20171127
  Serious: Yes (Other)
  Sender: FDA-Public Use
  Company Number: US-BAYER-2017-115071

PATIENT
  Age: 59 Year
  Sex: Male

DRUGS (3)
  1. STIVARGA [Suspect]
     Active Substance: REGORAFENIB
     Indication: COLORECTAL CANCER
     Dosage: 160 MG DAILY, 3 WEEKS ON 1 WEEK OFF
     Route: 048
     Dates: start: 20170601, end: 20170609
  2. STIVARGA [Suspect]
     Active Substance: REGORAFENIB
     Indication: COLORECTAL CANCER
     Dosage: 80 MG, DAILY, , 3 WEEKS ON 1 WEEK OFF
     Route: 048
     Dates: start: 20170710, end: 20170716
  3. STIVARGA [Suspect]
     Active Substance: REGORAFENIB
     Indication: COLORECTAL CANCER

REACTIONS (10)
  - Drug intolerance [None]
  - Abdominal pain upper [Not Recovered/Not Resolved]
  - Catheter placement [None]
  - Pain [None]
  - Nausea [None]
  - Gait inability [None]
  - Paraesthesia [None]
  - Feeling cold [None]
  - Pain in extremity [Not Recovered/Not Resolved]
  - Pain in extremity [None]

NARRATIVE: CASE EVENT DATE: 2017
